FAERS Safety Report 25146823 (Version 2)
Quarter: 2025Q2

REPORT INFORMATION
  Report Type: Spontaneous
  Country: AU (occurrence: AU)
  Receive Date: 20250401
  Receipt Date: 20250404
  Transmission Date: 20250717
  Serious: No
  Sender: NOVARTIS
  Company Number: AU-002147023-NVSC2025AU050146

PATIENT
  Age: 30 Year
  Sex: Female

DRUGS (5)
  1. BACLOFEN [Suspect]
     Active Substance: BACLOFEN
     Indication: Product used for unknown indication
     Route: 065
  2. AMITRIPTYLINE [Suspect]
     Active Substance: AMITRIPTYLINE
     Indication: Product used for unknown indication
     Route: 065
  3. DULOXETINE [Suspect]
     Active Substance: DULOXETINE
     Indication: Neuralgia
     Route: 065
  4. MODAFINIL [Suspect]
     Active Substance: MODAFINIL
     Indication: Product used for unknown indication
     Route: 065
  5. BOTOX [Concomitant]
     Active Substance: ONABOTULINUMTOXINA
     Indication: Product used for unknown indication
     Route: 065

REACTIONS (7)
  - Fatigue [Unknown]
  - Pain [Unknown]
  - Therapeutic response shortened [Unknown]
  - Migraine [Unknown]
  - Malaise [Unknown]
  - Cognitive disorder [Unknown]
  - Hypoaesthesia [Unknown]

NARRATIVE: CASE EVENT DATE: 20190101
